FAERS Safety Report 5217450-6 (Version None)
Quarter: 2007Q1

REPORT INFORMATION
  Report Type: 
  Country: None (occurrence: None)
  Receive Date: 20070124
  Receipt Date: 20060307
  Transmission Date: 20070707
  Serious: No
  Sender: FDA-Public Use
  Company Number: US-GLAXOSMITHKLINE-A0596309A

PATIENT
  Age: 67 Year
  Sex: Female

DRUGS (9)
  1. PAXIL CR [Suspect]
     Indication: PANIC DISORDER
     Dosage: 25MG PER DAY
     Route: 048
     Dates: end: 20060302
  2. PAROXETINE HYDROCHLORIDE [Suspect]
     Indication: PANIC DISORDER
     Route: 048
     Dates: start: 20060303
  3. PREMARIN [Concomitant]
  4. ACIPHEX [Concomitant]
  5. CALCIUM [Concomitant]
  6. VITAMIN CAP [Concomitant]
  7. TYLENOL [Concomitant]
  8. ADVIL [Concomitant]
  9. PAXIL [Concomitant]
     Indication: PANIC DISORDER
     Dosage: 20MG PER DAY
     Route: 048

REACTIONS (8)
  - DIZZINESS [None]
  - DRUG INEFFECTIVE [None]
  - DRUG WITHDRAWAL SYNDROME [None]
  - FATIGUE [None]
  - FEELING JITTERY [None]
  - HYPERHIDROSIS [None]
  - NAUSEA [None]
  - NIGHTMARE [None]
